FAERS Safety Report 7425720-6 (Version None)
Quarter: 2011Q2

REPORT INFORMATION
  Report Type: 
  Country: None (occurrence: None)
  Receive Date: 20110420
  Receipt Date: 20110415
  Transmission Date: 20111010
  Serious: Yes (Other)
  Sender: FDA-Public Use
  Company Number: RU-BRISTOL-MYERS SQUIBB COMPANY-15621154

PATIENT
  Age: 82 Year
  Sex: Female

DRUGS (1)
  1. SAXAGLIPTIN [Suspect]
     Indication: TYPE 2 DIABETES MELLITUS
     Dosage: RESTARTED WITH 2.5 MG

REACTIONS (1)
  - CEREBROVASCULAR ACCIDENT [None]
